FAERS Safety Report 4375383-1 (Version None)
Quarter: 2004Q2

REPORT INFORMATION
  Report Type: 
  Country: None (occurrence: None)
  Receive Date: 20040528
  Receipt Date: 20040511
  Transmission Date: 20050107
  Serious: Yes (Hospitalization)
  Sender: FDA-Public Use
  Company Number: THYM-10154

PATIENT
  Age: 34 Year
  Sex: 0
  Weight: 68.0396 kg

DRUGS (13)
  1. THYMOGLOBULIN [Suspect]
     Indication: PROPHYLAXIS AGAINST TRANSPLANT REJECTION
     Dosage: 100 MG QD IV
     Route: 042
     Dates: start: 20040422, end: 20040424
  2. THYMOGLOBULIN [Suspect]
  3. THYMOGLOBULIN [Suspect]
     Indication: PROPHYLAXIS AGAINST TRANSPLANT REJECTION
     Dosage: 50 MG QD IV
     Route: 042
     Dates: start: 20040425, end: 20040426
  4. THYMOGLOBULIN [Suspect]
  5. THYMOGLOBULIN [Suspect]
     Indication: PROPHYLAXIS AGAINST TRANSPLANT REJECTION
     Dosage: 25 MG QD IV
     Route: 042
     Dates: start: 20040427, end: 20040427
  6. THYMOGLOBULIN [Suspect]
  7. STEROIDS (UNSPECIFIED) [Concomitant]
  8. TYLENOL [Concomitant]
  9. BENADRYL [Concomitant]
  10. ANCEF [Concomitant]
  11. ZOSYN [Concomitant]
  12. CELLCEPT [Concomitant]
  13. PROGRAF [Concomitant]

REACTIONS (5)
  - BLOOD CREATININE INCREASED [None]
  - DIALYSIS [None]
  - PLATELET COUNT DECREASED [None]
  - THROMBOTIC MICROANGIOPATHY [None]
  - WHITE BLOOD CELL COUNT DECREASED [None]
